FAERS Safety Report 17389878 (Version 1)
Quarter: 2020Q1

REPORT INFORMATION
  Report Type: Spontaneous
  Country: SE (occurrence: SE)
  Receive Date: 20200207
  Receipt Date: 20200207
  Transmission Date: 20200409
  Serious: Yes (Other)
  Sender: FDA-Public Use
  Company Number: NVSC2020SE027994

PATIENT
  Age: 16 Year
  Sex: Male

DRUGS (2)
  1. PANDEMRIX [Suspect]
     Active Substance: INFLUENZA VIRUS VACCINE, SWINE
     Indication: PROPHYLAXIS
     Dosage: UNK
     Route: 030
     Dates: start: 20091109, end: 20091109
  2. LAMOTRIGINE. [Suspect]
     Active Substance: LAMOTRIGINE
     Indication: PRODUCT USED FOR UNKNOWN INDICATION
     Dosage: 100 MG
     Route: 065
     Dates: start: 201103, end: 201103

REACTIONS (10)
  - Cataplexy [Unknown]
  - Somnolence [Unknown]
  - Toxic epidermal necrolysis [Unknown]
  - Sleep disorder [Unknown]
  - Muscular weakness [Unknown]
  - Hypnagogic hallucination [Unknown]
  - Fatigue [Unknown]
  - Nightmare [Unknown]
  - Narcolepsy [Not Recovered/Not Resolved]
  - Stevens-Johnson syndrome [Unknown]

NARRATIVE: CASE EVENT DATE: 200912
